FAERS Safety Report 19307323 (Version 1)
Quarter: 2021Q2

REPORT INFORMATION
  Report Type: Spontaneous
  Country: US (occurrence: US)
  Receive Date: 20210525
  Receipt Date: 20210525
  Transmission Date: 20210717
  Serious: No
  Sender: FDA-Public Use
  Company Number: US-PURDUE PHARMA-USA-2020-0174197

PATIENT
  Sex: Female

DRUGS (1)
  1. OXYCODONE HYDROCHLORIDE. [Suspect]
     Active Substance: OXYCODONE HYDROCHLORIDE
     Indication: PROCEDURAL PAIN
     Dosage: 15 MG, UNK
     Route: 048

REACTIONS (7)
  - Feeling abnormal [Unknown]
  - Somnolence [Unknown]
  - Inadequate analgesia [Unknown]
  - Unevaluable event [Unknown]
  - Abdominal discomfort [Unknown]
  - Euphoric mood [Unknown]
  - Pruritus [Unknown]
